FAERS Safety Report 4410120-3 (Version None)
Quarter: 2004Q2

REPORT INFORMATION
  Report Type: 
  Country: None (occurrence: None)
  Receive Date: 20040618
  Receipt Date: 20040325
  Transmission Date: 20050107
  Serious: No
  Sender: FDA-Public Use
  Company Number: US-JNJFOC-20040305888

PATIENT
  Age: 38 Year
  Sex: Female
  Weight: 71.2147 kg

DRUGS (2)
  1. ORTHO EVRA [Suspect]
     Indication: CONTRACEPTION
     Dosage: 1 DOSE(S), 3 IN 4 WEEK, TRANSDERMAL
     Route: 062
  2. CLARITAN (NAFTIDROFURYL) [Concomitant]

REACTIONS (4)
  - ALOPECIA [None]
  - FLUID RETENTION [None]
  - IRRITABILITY [None]
  - MOOD SWINGS [None]
